FAERS Safety Report 23776734 (Version 2)
Quarter: 2024Q2

REPORT INFORMATION
  Report Type: Spontaneous
  Country: JP (occurrence: JP)
  Receive Date: 20240424
  Receipt Date: 20240429
  Transmission Date: 20240715
  Serious: Yes (Other)
  Sender: FDA-Public Use
  Company Number: JP-Vifor (International) Inc.-VIT-2024-03551

PATIENT

DRUGS (1)
  1. TAVNEOS [Suspect]
     Active Substance: AVACOPAN
     Indication: Anti-neutrophil cytoplasmic antibody positive vasculitis
     Dosage: MEDIAN DURATION OF TAVNEOS ADMINISTRATION WAS 155 (59-346) DAYS
     Route: 048

REACTIONS (1)
  - Liver function test abnormal [Recovering/Resolving]
